FAERS Safety Report 20852668 (Version 6)
Quarter: 2023Q1

REPORT INFORMATION
  Report Type: Report from Study
  Country: US (occurrence: US)
  Receive Date: 20220520
  Receipt Date: 20230323
  Transmission Date: 20230417
  Serious: Yes (Death, Hospitalization, Other)
  Sender: FDA-Public Use
  Company Number: US-ACADIA PHARMACEUTICALS INC.-ACA-2022-PIM-001480

PATIENT
  Age: 73 Year
  Sex: Female

DRUGS (35)
  1. NUPLAZID [Suspect]
     Active Substance: PIMAVANSERIN TARTRATE
     Indication: Parkinson^s disease psychosis
     Dosage: 34 MILLIGRAM, QD
     Route: 048
  2. NUPLAZID [Suspect]
     Active Substance: PIMAVANSERIN TARTRATE
     Indication: Hallucination
     Dosage: 34 MILLIGRAM, QD
     Route: 048
  3. NUPLAZID [Suspect]
     Active Substance: PIMAVANSERIN TARTRATE
     Indication: Delusion
     Dosage: 34 MILLIGRAM, QD
     Route: 048
  4. NUPLAZID [Suspect]
     Active Substance: PIMAVANSERIN TARTRATE
     Indication: Parkinson^s disease psychosis
     Dosage: 10 MILLIGRAM, QD
     Route: 065
  5. NUPLAZID [Suspect]
     Active Substance: PIMAVANSERIN TARTRATE
     Indication: Hallucination
     Dosage: 20 MILLIGRAM, QD
     Route: 065
  6. NUPLAZID [Suspect]
     Active Substance: PIMAVANSERIN TARTRATE
     Indication: Delusion
     Dosage: 20 MILLIGRAM, QD
     Route: 065
     Dates: start: 2022
  7. NUPLAZID [Suspect]
     Active Substance: PIMAVANSERIN TARTRATE
     Dosage: 10 MILLIGRAM, BID
     Route: 065
  8. RYTARY [Concomitant]
     Active Substance: CARBIDOPA\LEVODOPA
  9. WELLBUTRIN [Concomitant]
     Active Substance: BUPROPION HYDROCHLORIDE
  10. SIMVASTATIN [Concomitant]
     Active Substance: SIMVASTATIN
  11. CANNABIS SATIVA SUBSP. INDICA TOP [Concomitant]
     Active Substance: CANNABIS SATIVA SUBSP. INDICA TOP
  12. BONINE [Concomitant]
     Active Substance: MECLIZINE HYDROCHLORIDE
  13. SINEMET [Concomitant]
     Active Substance: CARBIDOPA\LEVODOPA
     Dosage: AS NEEDED
  14. EFFEXOR [Concomitant]
     Active Substance: VENLAFAXINE HYDROCHLORIDE
  15. KLONOPIN [Concomitant]
     Active Substance: CLONAZEPAM
  16. DICLOFENAC [Concomitant]
     Active Substance: DICLOFENAC
  17. FLUDROCORTISONE [Concomitant]
     Active Substance: FLUDROCORTISONE
  18. METHENAMINE [Concomitant]
     Active Substance: METHENAMINE
  19. PREMPRO [Concomitant]
     Active Substance: ESTROGENS, CONJUGATED\MEDROXYPROGESTERONE ACETATE
  20. COLACE [Concomitant]
     Active Substance: DOCUSATE SODIUM
  21. MIRALAX [Concomitant]
     Active Substance: POLYETHYLENE GLYCOL 3350
  22. PANTOPRAZOLE [Concomitant]
     Active Substance: PANTOPRAZOLE
  23. CRANBERRY [Concomitant]
     Active Substance: CRANBERRY
  24. VITAMIN D3 [Concomitant]
     Active Substance: CHOLECALCIFEROL
  25. TYLENOL [Concomitant]
     Active Substance: ACETAMINOPHEN
  26. UNSPECIFIED INGREDIENT [Concomitant]
     Active Substance: UNSPECIFIED INGREDIENT
  27. FLONASE [Concomitant]
     Active Substance: FLUTICASONE PROPIONATE
  28. MOTRIN [Concomitant]
     Active Substance: IBUPROFEN
  29. CHOLECALCIFEROL [Concomitant]
     Active Substance: CHOLECALCIFEROL
  30. FLUTICASONE [Concomitant]
     Active Substance: FLUTICASONE
  31. METAMUCIL [Concomitant]
     Active Substance: PLANTAGO SEED
  32. CARBIDOPA\LEVODOPA [Concomitant]
     Active Substance: CARBIDOPA\LEVODOPA
  33. CLONAZEPAM [Concomitant]
     Active Substance: CLONAZEPAM
  34. ALLEGRA [Concomitant]
     Active Substance: FEXOFENADINE HYDROCHLORIDE
  35. DOCUSATE [Concomitant]
     Active Substance: DOCUSATE

REACTIONS (19)
  - Death [Fatal]
  - Kidney infection [Not Recovered/Not Resolved]
  - Urinary tract infection [Not Recovered/Not Resolved]
  - Suicidal ideation [Unknown]
  - Intentional dose omission [Unknown]
  - Dysphagia [Unknown]
  - Lethargy [Unknown]
  - Movement disorder [Unknown]
  - Negative thoughts [Unknown]
  - Blood pressure increased [Recovered/Resolved]
  - Product dose omission issue [Unknown]
  - Refusal of treatment by patient [Unknown]
  - Asthenia [Unknown]
  - Feeling hot [Unknown]
  - Refusal of treatment by patient [Unknown]
  - Burning sensation [Unknown]
  - Inappropriate schedule of product administration [Unknown]
  - Hallucination [Unknown]
  - Hallucination [Unknown]

NARRATIVE: CASE EVENT DATE: 20220424
